FAERS Safety Report 12346714 (Version 1)
Quarter: 2016Q2

REPORT INFORMATION
  Report Type: Other
  Country: FR (occurrence: FR)
  Receive Date: 20160509
  Receipt Date: 20160509
  Transmission Date: 20160815
  Serious: Yes (Hospitalization, Other)
  Sender: FDA-Public Use
  Company Number: FR-SHIRE-FR201504432

PATIENT
  Age: 72 Year
  Sex: Female
  Weight: 78 kg

DRUGS (6)
  1. AMLODIPINE [Concomitant]
     Active Substance: AMLODIPINE BESYLATE
     Indication: HYPERTENSION
     Dosage: UNK, UNKNOWN
     Route: 065
  2. XAGRID [Suspect]
     Active Substance: ANAGRELIDE HYDROCHLORIDE
     Dosage: 1 MG (2 CAPSULES), UNKNOWN (PER DAY)
     Route: 048
  3. DAFALGAN CODEINE [Suspect]
     Active Substance: ACETAMINOPHEN\CODEINE PHOSPHATE
     Indication: SPINAL PAIN
     Dosage: UNK, 3X/DAY:TID
     Route: 065
  4. XAGRID [Suspect]
     Active Substance: ANAGRELIDE HYDROCHLORIDE
     Indication: ESSENTIAL THROMBOCYTHAEMIA
     Dosage: 1.5 MG (3 CAPSULES), UNKNOWN (PER DAY)
     Route: 048
     Dates: start: 20140301
  5. ALLOPURINOL. [Concomitant]
     Active Substance: ALLOPURINOL
     Indication: GOUT
     Dosage: UNK, UNKNOWN
     Route: 065
  6. BISOPROLOL [Concomitant]
     Active Substance: BISOPROLOL
     Indication: TACHYCARDIA
     Dosage: UNK, UNKNOWN
     Route: 065

REACTIONS (9)
  - Epistaxis [Unknown]
  - Fatigue [Unknown]
  - Skin ulcer [Recovered/Resolved]
  - Nausea [Recovered/Resolved]
  - Depression [Unknown]
  - Peripheral paralysis [Not Recovered/Not Resolved]
  - Peripheral sensory neuropathy [Not Recovered/Not Resolved]
  - Phlebitis [Unknown]
  - Asthenia [Unknown]

NARRATIVE: CASE EVENT DATE: 20150801
